FAERS Safety Report 4465944-3 (Version None)
Quarter: 2004Q3

REPORT INFORMATION
  Report Type: 
  Country: None (occurrence: None)
  Receive Date: 20040930
  Receipt Date: 20040930
  Transmission Date: 20050211
  Serious: Yes (Hospitalization)
  Sender: FDA-Public Use
  Company Number: None

PATIENT
  Sex: Male

DRUGS (17)
  1. GABAPENTIN [Suspect]
     Indication: PHANTOM PAIN
     Dosage: 7200 MG DAILY ORAL
     Route: 048
  2. TRAZODONE HCL [Concomitant]
  3. ALBUTEROL [Concomitant]
  4. ASPIRIN [Concomitant]
  5. FELODIPINE [Concomitant]
  6. FERROUS SULFATE TAB [Concomitant]
  7. FUROSEMIDE [Concomitant]
  8. GLYBURIDE [Concomitant]
  9. IPRATROPIUM BROMIDE [Concomitant]
  10. RABEPRAZOLE SODIUM [Concomitant]
  11. LISINOPRIL [Concomitant]
  12. ISOSORBIDE MONONITRATE [Concomitant]
  13. POTASSIUM CHLORIDE [Concomitant]
  14. MULTI-VITAMIN [Concomitant]
  15. TOPROL-XL [Concomitant]
  16. IBUPROFEN [Concomitant]
  17. NORTRIPTYLINE HCL [Concomitant]

REACTIONS (3)
  - ATAXIA [None]
  - DYSARTHRIA [None]
  - MEDICATION ERROR [None]
